FAERS Safety Report 4414824-8 (Version None)
Quarter: 2004Q3

REPORT INFORMATION
  Report Type: 
  Country: None (occurrence: None)
  Receive Date: 20040804
  Receipt Date: 20031103
  Transmission Date: 20050211
  Serious: No
  Sender: FDA-Public Use
  Company Number: US-BRISTOL-MYERS SQUIBB COMPANY-12425476

PATIENT
  Age: 56 Year
  Sex: Male
  Weight: 145 kg

DRUGS (2)
  1. GLUCOVANCE [Suspect]
     Indication: DIABETES MELLITUS
     Dosage: DOSAGE FORM = 2.5/500MG TABLET
     Route: 048
     Dates: start: 20031027, end: 20031101
  2. PERCODAN [Concomitant]
     Indication: PAIN
     Dosage: DOSAGE FORM= TABLET

REACTIONS (1)
  - DIPLOPIA [None]
